FAERS Safety Report 4753638-6 (Version None)
Quarter: 2005Q3

REPORT INFORMATION
  Report Type: 
  Country: None (occurrence: None)
  Receive Date: 20050824
  Receipt Date: 20050811
  Transmission Date: 20060218
  Serious: Yes (Hospitalization)
  Sender: FDA-Public Use
  Company Number: 2005114516

PATIENT
  Age: 51 Year
  Sex: Female
  Weight: 64 kg

DRUGS (5)
  1. CELEBREX [Suspect]
     Indication: PSORIASIS
  2. CORTIVAZOL (CORTIVAZOL) [Suspect]
     Indication: PSORIASIS
     Dates: start: 20041018, end: 20041118
  3. PREDNISON (PREDNISONE) [Suspect]
     Indication: PSORIASIS
     Dosage: 4 MG (1 IN 1 D), ORAL
     Route: 048
  4. INFLIXIMAB (INFLIXIMAB) [Suspect]
     Indication: PSORIASIS
     Dosage: (CYCLICAL), INTRAVENOUS
     Route: 042
     Dates: start: 20031022
  5. METHOTREXATE [Suspect]
     Indication: PSORIASIS
     Dosage: 2.5 MG (2.5 MG, 1 IN 1 WK), ORAL
     Route: 048

REACTIONS (3)
  - AUTOIMMUNE DISORDER [None]
  - BIOPSY SKIN ABNORMAL [None]
  - RASH [None]
